FAERS Safety Report 9310503 (Version 1)
Quarter: 2013Q2

REPORT INFORMATION
  Report Type: Spontaneous
  Country: US (occurrence: US)
  Receive Date: 20130527
  Receipt Date: 20130527
  Transmission Date: 20140414
  Serious: No
  Sender: FDA-Public Use
  Company Number: US-PFIZER INC-2013157288

PATIENT
  Age: 59 Year
  Sex: Female
  Weight: 67.6 kg

DRUGS (1)
  1. PREMPRO [Suspect]
     Indication: HORMONE REPLACEMENT THERAPY
     Dosage: 0.3/1.5 MG, 1X/DAY
     Route: 048
     Dates: start: 20120115, end: 201304

REACTIONS (2)
  - Lip swelling [Not Recovered/Not Resolved]
  - Cheilitis [Not Recovered/Not Resolved]
